FAERS Safety Report 9842485 (Version 2)
Quarter: 2014Q1

REPORT INFORMATION
  Report Type: Spontaneous
  Country: US (occurrence: US)
  Receive Date: 20140124
  Receipt Date: 20140124
  Transmission Date: 20141002
  Serious: Yes (Other)
  Sender: FDA-Public Use
  Company Number: US-GILEAD-2011-0042374

PATIENT
  Sex: Male

DRUGS (4)
  1. RANEXA [Suspect]
     Indication: PRODUCT USED FOR UNKNOWN INDICATION
     Route: 048
  2. RANEXA [Suspect]
     Route: 048
  3. DIGOXIN [Concomitant]
  4. AMIODARONE [Concomitant]

REACTIONS (1)
  - Electrocardiogram QT prolonged [Unknown]
